FAERS Safety Report 7757962-4 (Version None)
Quarter: 2011Q3

REPORT INFORMATION
  Report Type: 
  Country: None (occurrence: None)
  Receive Date: 20110919
  Receipt Date: 20110909
  Transmission Date: 20111222
  Serious: Yes (Hospitalization)
  Sender: FDA-Public Use
  Company Number: US-BIOGENIDEC-2011BI025904

PATIENT
  Age: 54 Year
  Sex: Male

DRUGS (1)
  1. AVONEX [Suspect]
     Indication: MULTIPLE SCLEROSIS
     Route: 030

REACTIONS (6)
  - CORONARY ARTERY OCCLUSION [None]
  - RIB FRACTURE [None]
  - INFLUENZA LIKE ILLNESS [None]
  - FALL [None]
  - MULTIPLE SCLEROSIS RELAPSE [None]
  - TOOTH DISORDER [None]
